FAERS Safety Report 11739929 (Version 3)
Quarter: 2016Q1

REPORT INFORMATION
  Report Type: Spontaneous
  Country: JP (occurrence: JP)
  Receive Date: 20151113
  Receipt Date: 20160202
  Transmission Date: 20160525
  Serious: Yes (Hospitalization)
  Sender: FDA-Public Use
  Company Number: JP-009507513-1511JPN004056

PATIENT
  Age: 73 Year
  Sex: Male
  Weight: 73.8 kg

DRUGS (8)
  1. WARFARIN POTASSIUM [Concomitant]
     Active Substance: WARFARIN POTASSIUM
     Indication: ATRIAL FIBRILLATION
     Dosage: DIVIDED DOSE FREQUENCY UNKNOWN
     Route: 048
  2. SOVALDI [Suspect]
     Active Substance: SOFOSBUVIR
     Indication: CHRONIC HEPATITIS C
     Dosage: DIVIDED DOSE FREQUENCY UNKNOWN
     Route: 048
     Dates: start: 20150819, end: 20151002
  3. CARVEDILOL. [Concomitant]
     Active Substance: CARVEDILOL
     Indication: HYPERTENSION
     Dosage: DIVIDED DOSE FREQUENCY UNKNOWN
     Route: 048
  4. WARFARIN POTASSIUM [Concomitant]
     Active Substance: WARFARIN POTASSIUM
     Dosage: DIVIDED DOSE FREQUENCY UNKNOWN
     Route: 048
  5. SUPACAL [Concomitant]
     Indication: CHRONIC GASTRITIS
     Dosage: DIVIDED DOSE FREQUENCY UNKNOWN
     Route: 048
  6. LYRICA [Concomitant]
     Active Substance: PREGABALIN
     Indication: NEUROPATHY PERIPHERAL
     Dosage: DIVIDED DOSE FREQUENCY UNKNOWN
     Route: 048
  7. REBETOL [Suspect]
     Active Substance: RIBAVIRIN
     Indication: CHRONIC HEPATITIS C
     Dosage: TDIVIDED DOSE FREQUENCY UNKNOWN
     Route: 048
     Dates: start: 20150819, end: 20151002
  8. BENIDIPINE HYDROCHLORIDE [Concomitant]
     Active Substance: BENIDIPINE HYDROCHLORIDE
     Indication: HYPERTENSION
     Dosage: DIVIDED DOSE FREQUENCY UNKNOWN
     Route: 048

REACTIONS (1)
  - Liver disorder [Recovering/Resolving]

NARRATIVE: CASE EVENT DATE: 20151001
